FAERS Safety Report 7601613-6 (Version None)
Quarter: 2011Q3

REPORT INFORMATION
  Report Type: 
  Country: None (occurrence: None)
  Receive Date: 20110711
  Receipt Date: 20110630
  Transmission Date: 20111222
  Serious: Yes (Other)
  Sender: FDA-Public Use
  Company Number: PHHY2011US58840

PATIENT
  Sex: Male

DRUGS (1)
  1. GILENYA [Suspect]
     Indication: MULTIPLE SCLEROSIS
     Dosage: 0.5 MG, QD
     Route: 048
     Dates: start: 20110623

REACTIONS (12)
  - RASH [None]
  - ABDOMINAL PAIN [None]
  - ABDOMINAL DISTENSION [None]
  - NAUSEA [None]
  - LOSS OF CONSCIOUSNESS [None]
  - MUSCULAR WEAKNESS [None]
  - LIMB DISCOMFORT [None]
  - VOMITING [None]
  - BACK PAIN [None]
  - PRURITUS [None]
  - FATIGUE [None]
  - SEXUAL DYSFUNCTION [None]
